FAERS Safety Report 8246721-4 (Version None)
Quarter: 2012Q1

REPORT INFORMATION
  Report Type: 
  Country: None (occurrence: None)
  Receive Date: 20120316
  Receipt Date: 20090501
  Transmission Date: 20120608
  Serious: Yes (Other)
  Sender: FDA-Public Use
  Company Number: PHEH2009US04329

PATIENT
  Sex: Female

DRUGS (5)
  1. COREG [Concomitant]
  2. ACE INHIBITOR NOS (NO INGREDIENTS/SUBSTANCES) [Concomitant]
  3. CALCIUM CHANNEL BLOCKERS (NO INGREDIENTS/SUBSTANCES) [Concomitant]
  4. TEKTURNA [Suspect]
     Indication: HYPERTENSION
     Dosage: 150 MG, QD, ORAL;  150 MG, TWICE WEEKLY
  5. HYDROCHLOROTHIAZIDE [Concomitant]

REACTIONS (1)
  - HYPOTENSION [None]
